FAERS Safety Report 22400409 (Version 3)
Quarter: 2025Q3

REPORT INFORMATION
  Report Type: Spontaneous
  Country: EU (occurrence: EU)
  Receive Date: 20230602
  Receipt Date: 20250911
  Transmission Date: 20251021
  Serious: Yes (Hospitalization, Disabling, Other)
  Sender: MYLAN
  Company Number: EU-PANACEA-MWE-PAN-23_00045

PATIENT
  Age: 80 Year
  Sex: Female

DRUGS (3)
  1. MYCOPHENOLATE MOFETIL [Suspect]
     Active Substance: MYCOPHENOLATE MOFETIL
     Indication: Ocular pemphigoid
     Dosage: 1500 MILLIGRAM, QD
  2. PREDNISOLONE [Suspect]
     Active Substance: PREDNISOLONE
     Indication: Product used for unknown indication
     Dosage: 5 MILLIGRAM, QD
  3. CYCLOSPORINE [Suspect]
     Active Substance: CYCLOSPORINE
     Indication: Product used for unknown indication

REACTIONS (7)
  - Pemphigoid [Unknown]
  - Ophthalmic herpes zoster [Recovered/Resolved with Sequelae]
  - Off label use [Unknown]
  - Disease recurrence [Unknown]
  - Ocular pemphigoid [Unknown]
  - Limbal stem cell deficiency [Not Recovered/Not Resolved]
  - COVID-19 [Recovered/Resolved]
